FAERS Safety Report 14413679 (Version 1)
Quarter: 2018Q1

REPORT INFORMATION
  Report Type: Spontaneous
  Country: US (occurrence: US)
  Receive Date: 20180118
  Receipt Date: 20180118
  Transmission Date: 20180509
  Serious: Yes (Other)
  Sender: FDA-Public Use
  Company Number: None

PATIENT
  Age: 66 Year
  Sex: Male
  Weight: 121.5 kg

DRUGS (1)
  1. KETOCONAZOLE CREAM 2% [Suspect]
     Active Substance: KETOCONAZOLE
     Indication: TINEA PEDIS
     Dates: start: 20180104, end: 20180110

REACTIONS (5)
  - Dermatitis allergic [None]
  - Skin discolouration [None]
  - Pruritus [None]
  - Tinea pedis [None]
  - Peripheral swelling [None]

NARRATIVE: CASE EVENT DATE: 20180110
